FAERS Safety Report 8509743-1 (Version None)
Quarter: 2012Q3

REPORT INFORMATION
  Report Type: 
  Country: None (occurrence: None)
  Receive Date: 20120703
  Receipt Date: 20120621
  Transmission Date: 20120928
  Serious: Yes (Hospitalization)
  Sender: FDA-Public Use
  Company Number: JPI-P-020365

PATIENT
  Age: 77 Year
  Sex: Female
  Weight: 72.5755 kg

DRUGS (18)
  1. ESOMEPRAZOLE [Concomitant]
  2. XYREM [Suspect]
     Indication: NARCOLEPSY
     Dosage: 4.5 GM (2.25 GM,2 IN 1 D),ORAL, 5 GM (5 GM, 1 IN 1 D),ORAL
     Route: 048
     Dates: start: 20070921
  3. XYREM [Suspect]
     Indication: SOMNOLENCE
     Dosage: 4.5 GM (2.25 GM,2 IN 1 D),ORAL, 5 GM (5 GM, 1 IN 1 D),ORAL
     Route: 048
     Dates: start: 20070921
  4. XYREM [Suspect]
     Indication: NARCOLEPSY
     Dosage: 4.5 GM (2.25 GM,2 IN 1 D),ORAL, 5 GM (5 GM, 1 IN 1 D),ORAL
     Route: 048
     Dates: start: 20101108
  5. XYREM [Suspect]
     Indication: SOMNOLENCE
     Dosage: 4.5 GM (2.25 GM,2 IN 1 D),ORAL, 5 GM (5 GM, 1 IN 1 D),ORAL
     Route: 048
     Dates: start: 20101108
  6. AMLODIPINE [Concomitant]
  7. MAGNESIUM SULFATE [Concomitant]
  8. ALBUTEROL (INHALANT) [Concomitant]
  9. METHYLPHENIDATE [Concomitant]
  10. WARFARIN SODIUM [Concomitant]
  11. VITAMIN B-12 [Concomitant]
  12. LEVOTHYROXINE SODIUM [Concomitant]
  13. POTASSIUM CHLORIDE [Concomitant]
  14. FEXOFENADINE [Concomitant]
  15. ROSUVASTATIN [Concomitant]
  16. MONTELUKAST [Concomitant]
  17. CALCIUM [Concomitant]
  18. VITAMIN B1 TAB [Concomitant]

REACTIONS (12)
  - BRONCHITIS [None]
  - INITIAL INSOMNIA [None]
  - PULMONARY CONGESTION [None]
  - PNEUMONIA [None]
  - PROTHROMBIN TIME PROLONGED [None]
  - WEIGHT DECREASED [None]
  - FLUID RETENTION [None]
  - COMPULSIVE LIP BITING [None]
  - LARYNGITIS [None]
  - CARDIAC FIBRILLATION [None]
  - PULMONARY OEDEMA [None]
  - ATRIAL FIBRILLATION [None]
